FAERS Safety Report 5990126-3 (Version None)
Quarter: 2008Q4

REPORT INFORMATION
  Report Type: 
  Country: None (occurrence: None)
  Receive Date: 20081211
  Receipt Date: 20081202
  Transmission Date: 20090506
  Serious: Yes (Death)
  Sender: FDA-Public Use
  Company Number: IL-WYE-H07050508

PATIENT
  Age: 1 Month
  Sex: Female
  Weight: 0.9 kg

DRUGS (5)
  1. TYGACIL [Suspect]
     Indication: PATHOGEN RESISTANCE
     Dosage: 1 MG/KG X2/DAY
     Route: 042
     Dates: start: 20081025, end: 20081103
  2. TYGACIL [Suspect]
     Indication: ACINETOBACTER INFECTION
  3. COLIRACIN [Concomitant]
  4. UNASYN [Concomitant]
  5. AMPHOTERICIN B [Concomitant]

REACTIONS (1)
  - MULTI-ORGAN FAILURE [None]
